FAERS Safety Report 12395739 (Version 1)
Quarter: 2016Q2

REPORT INFORMATION
  Report Type: Spontaneous
  Country: CA (occurrence: CA)
  Receive Date: 20160523
  Receipt Date: 20160523
  Transmission Date: 20160815
  Serious: Yes (Other)
  Sender: FDA-Public Use
  Company Number: CA-B.I. PHARMACEUTICALS,INC./RIDGEFIELD-2016-BI-31353CN

PATIENT
  Age: 68 Year
  Sex: Male
  Weight: 84 kg

DRUGS (4)
  1. NORVASC [Concomitant]
     Active Substance: AMLODIPINE BESYLATE
     Indication: PRODUCT USED FOR UNKNOWN INDICATION
     Route: 065
  2. TRADJENTA [Suspect]
     Active Substance: LINAGLIPTIN
     Indication: BLOOD GLUCOSE INCREASED
     Dosage: 5 MG
     Route: 048
  3. ASPIRIN. [Concomitant]
     Active Substance: ASPIRIN
     Indication: PRODUCT USED FOR UNKNOWN INDICATION
     Route: 065
  4. AVODART [Concomitant]
     Active Substance: DUTASTERIDE
     Indication: PRODUCT USED FOR UNKNOWN INDICATION
     Route: 065

REACTIONS (20)
  - Blood cholesterol increased [Recovered/Resolved]
  - Condition aggravated [Recovered/Resolved]
  - Pulmonary congestion [Recovered/Resolved]
  - Skin hypertrophy [Recovered/Resolved]
  - Arrhythmia [Recovered/Resolved]
  - Asthenia [Recovered/Resolved]
  - Cognitive disorder [Recovered/Resolved]
  - Nasal congestion [Recovered/Resolved]
  - Dysphonia [Recovered/Resolved]
  - Back pain [Recovered/Resolved]
  - Low density lipoprotein increased [Recovered/Resolved]
  - Skin exfoliation [Recovered/Resolved]
  - Dyspnoea [Recovered/Resolved]
  - Nasal inflammation [Recovered/Resolved]
  - Pain in extremity [Recovered/Resolved]
  - Arthralgia [Recovered/Resolved]
  - Blood pressure increased [Recovered/Resolved]
  - Rash macular [Recovered/Resolved]
  - Balance disorder [Recovered/Resolved]
  - Thyroid hormones decreased [Recovered/Resolved]
